FAERS Safety Report 21206417 (Version 3)
Quarter: 2022Q4

REPORT INFORMATION
  Report Type: Spontaneous
  Country: DE (occurrence: DE)
  Receive Date: 20220812
  Receipt Date: 20221011
  Transmission Date: 20230112
  Serious: Yes (Hospitalization, Other)
  Sender: FDA-Public Use
  Company Number: DE-DCGMA-21195513

PATIENT
  Age: 17 Year
  Sex: Male
  Weight: 70 kg

DRUGS (2)
  1. ALPRAZOLAM [Interacting]
     Active Substance: ALPRAZOLAM
     Indication: Aggression
     Dosage: 6 MG
     Route: 048
     Dates: start: 20211018, end: 20211018
  2. ALCOHOL [Interacting]
     Active Substance: ALCOHOL
     Dosage: UNK
     Route: 065
     Dates: start: 20211018, end: 20211018

REACTIONS (6)
  - Blood creatine phosphokinase increased [Unknown]
  - Blood lactate dehydrogenase increased [Unknown]
  - Alcohol poisoning [Unknown]
  - Toxicity to various agents [Unknown]
  - Alcohol interaction [Unknown]
  - Off label use [Unknown]

NARRATIVE: CASE EVENT DATE: 20211018
